FAERS Safety Report 5505847-6 (Version None)
Quarter: 2007Q4

REPORT INFORMATION
  Report Type: 
  Country: None (occurrence: None)
  Receive Date: 20071102
  Receipt Date: 20071023
  Transmission Date: 20080405
  Serious: Yes (Disabling, Other)
  Sender: FDA-Public Use
  Company Number: US-PFIZER INC-2007089740

PATIENT
  Sex: Male
  Weight: 86.2 kg

DRUGS (6)
  1. RELPAX [Suspect]
     Indication: MIGRAINE
  2. THOMAPYRIN N [Suspect]
     Indication: MIGRAINE
  3. IMITREX [Suspect]
     Indication: MIGRAINE
  4. BUTALBITAL [Suspect]
     Indication: MIGRAINE
  5. TARKA [Concomitant]
  6. SKELAXIN [Concomitant]

REACTIONS (6)
  - BACK INJURY [None]
  - DISABILITY [None]
  - DRUG INEFFECTIVE [None]
  - MEMORY IMPAIRMENT [None]
  - PAIN [None]
  - POLLAKIURIA [None]
